FAERS Safety Report 5655540-4 (Version None)
Quarter: 2008Q1

REPORT INFORMATION
  Report Type: 
  Country: None (occurrence: None)
  Receive Date: 20080307
  Receipt Date: 20080226
  Transmission Date: 20080703
  Serious: Yes (Other)
  Sender: FDA-Public Use
  Company Number: US-SANOFI-SYNTHELABO-A03200800753

PATIENT
  Sex: Female
  Weight: 54.4 kg

DRUGS (1)
  1. AMBIEN [Suspect]
     Indication: INSOMNIA
     Dosage: CUT 5 MG TABLETS IN HALF TAKING ONLY 1/2 A TABLET (2.5 MG) PRN
     Route: 048
     Dates: start: 20071001, end: 20070101

REACTIONS (2)
  - INTENTIONAL DRUG MISUSE [None]
  - VICTIM OF CRIME [None]
